FAERS Safety Report 8809916 (Version 1)
Quarter: 2012Q4

REPORT INFORMATION
  Report Type: 
  Country: DE (occurrence: GB)
  Receive Date: 20120926
  Receipt Date: 20120926
  Transmission Date: 20130627
  Serious: Yes (Disabling)
  Sender: FDA-Public Use
  Company Number: GB-FRI-1000038932

PATIENT
  Age: 84 Year
  Sex: Female

DRUGS (5)
  1. MEMANTINE [Suspect]
     Indication: DEMENTIA ALZHEIMER^S TYPE
     Dosage: 10 mg
     Dates: start: 20120704, end: 20120828
  2. CALCICHEW D3 [Concomitant]
     Dosage: 1 DF
     Route: 048
  3. OMEPRAZOLE [Concomitant]
     Dosage: 20 mg
     Route: 048
  4. QUININE [Concomitant]
     Dosage: 200 mg
     Route: 048
  5. SPIRIVA [Concomitant]
     Dosage: 2 DF
     Route: 055

REACTIONS (4)
  - Condition aggravated [Not Recovered/Not Resolved]
  - Disorientation [Not Recovered/Not Resolved]
  - Tremor [Not Recovered/Not Resolved]
  - Gait disturbance [Not Recovered/Not Resolved]
